FAERS Safety Report 9434416 (Version 1)
Quarter: 2013Q3

REPORT INFORMATION
  Report Type: Spontaneous
  Country: US (occurrence: None)
  Receive Date: 20130731
  Receipt Date: 20130731
  Transmission Date: 20140515
  Serious: Yes (Hospitalization)
  Sender: FDA-Public Use
  Company Number: None

PATIENT
  Age: 46 Year
  Sex: Male
  Weight: 91.1 kg

DRUGS (2)
  1. VENLAFAXINE [Suspect]
     Indication: DEPRESSION
     Dosage: 150 MG EVERY DAY PO
     Route: 048
     Dates: start: 20130521, end: 20130530
  2. TRAZODONE [Suspect]
     Dosage: 100 MG  HS  PO
     Route: 048
     Dates: start: 20120425

REACTIONS (9)
  - Serotonin syndrome [None]
  - Fall [None]
  - Tremor [None]
  - Nystagmus [None]
  - Hyperreflexia [None]
  - Agitation [None]
  - Confusional state [None]
  - Syncope [None]
  - Hyperhidrosis [None]
